FAERS Safety Report 17859638 (Version 1)
Quarter: 2020Q2

REPORT INFORMATION
  Report Type: Spontaneous
  Country: US (occurrence: US)
  Receive Date: 20200603
  Receipt Date: 20200603
  Transmission Date: 20200714
  Serious: Yes (Disabling)
  Sender: FDA-Public Use
  Company Number: None

PATIENT
  Age: 36 Year
  Sex: Male
  Weight: 67.5 kg

DRUGS (2)
  1. DOXYCYCLINE MONO [Concomitant]
     Active Substance: DOXYCYCLINE
  2. ERYTHROMYCIN OPTHALMIC OINTMENT, USP 0.5% [Suspect]
     Active Substance: ERYTHROMYCIN
     Indication: HORDEOLUM
     Dates: start: 20200505, end: 20200601

REACTIONS (2)
  - Corneal oedema [None]
  - Vision blurred [None]

NARRATIVE: CASE EVENT DATE: 20200522
